FAERS Safety Report 9837442 (Version 1)
Quarter: 2013Q4

REPORT INFORMATION
  Report Type: Spontaneous
  Country: US (occurrence: None)
  Receive Date: 20131205
  Receipt Date: 20131205
  Transmission Date: 20140711
  Serious: Yes (Hospitalization)
  Sender: FDA-Public Use
  Company Number: 163-POMAL-13090866

PATIENT
  Age: 78 Year
  Sex: Male

DRUGS (10)
  1. BORTEZOMIB (BORTEZOMIB) [Concomitant]
  2. POMALYST (POMALIDOMIDE) [Suspect]
     Indication: PLASMA CELL MYELOMA
     Dates: start: 20130718, end: 20130807
  3. ASPIRIN (ACETYLSALICYLIC ACID) [Concomitant]
  4. CEFUROXIME AXETIL (CEFUROXIME AXETIL) [Concomitant]
  5. CRANBERRY (VACCINIUM OXYCOCCUS FRUIT EXTRACT) [Concomitant]
  6. DEXAMETHASONE (DEXAMETHASONE) [Concomitant]
  7. FOLIC ACID (FOLIC ACID) [Concomitant]
  8. MEGACE ES (MEGESTROL ACETATE) [Concomitant]
  9. SIMVASTATIN (SIMVASTATIN) [Concomitant]
  10. VELCADE (BORTEZOMIB) [Concomitant]

REACTIONS (2)
  - Pancytopenia [None]
  - Febrile neutropenia [None]
